FAERS Safety Report 9893127 (Version 3)
Quarter: 2014Q1

REPORT INFORMATION
  Report Type: Spontaneous
  Country: SK (occurrence: SK)
  Receive Date: 20140213
  Receipt Date: 20140326
  Transmission Date: 20141002
  Serious: Yes (Other)
  Sender: FDA-Public Use
  Company Number: SK-ROCHE-1347234

PATIENT
  Age: 55 Year
  Sex: Female

DRUGS (7)
  1. HERCEPTIN [Suspect]
     Indication: METASTASES TO LUNG
     Route: 065
     Dates: start: 20100528, end: 20101112
  2. XELODA [Suspect]
     Indication: METASTASES TO LUNG
     Route: 065
     Dates: start: 201203
  3. XELODA [Suspect]
     Indication: METASTASES TO BONE
  4. DOCETAXEL [Concomitant]
  5. ANASTROZOLE [Concomitant]
     Route: 065
     Dates: start: 201102, end: 201202
  6. LAPATINIB [Concomitant]
     Route: 065
     Dates: start: 201203, end: 201303
  7. VINORELBINE [Concomitant]
     Route: 065
     Dates: end: 201303

REACTIONS (2)
  - Cardiotoxicity [Recovered/Resolved]
  - Ischaemia [Recovered/Resolved]
